FAERS Safety Report 4399846-8 (Version None)
Quarter: 2004Q3

REPORT INFORMATION
  Report Type: 
  Country: None (occurrence: None)
  Receive Date: 20040714
  Receipt Date: 20031117
  Transmission Date: 20050211
  Serious: Yes (Death)
  Sender: FDA-Public Use
  Company Number: M2004-0850

PATIENT
  Sex: Male

DRUGS (2)
  1. PROPRANOLOL [Suspect]
     Indication: HYPERTENSION
     Dosage: 80 MG QD
     Dates: start: 20001101
  2. LANSOPRAZOLE 15 MG [Suspect]
     Dosage: 15 MG , QD

REACTIONS (1)
  - THROMBOCYTOPENIA [None]
